FAERS Safety Report 4781766-8 (Version None)
Quarter: 2005Q3

REPORT INFORMATION
  Report Type: 
  Country: None (occurrence: None)
  Receive Date: 20050927
  Receipt Date: 20050915
  Transmission Date: 20060218
  Serious: Yes (Other)
  Sender: FDA-Public Use
  Company Number: 2005BI015698

PATIENT
  Age: 51 Year
  Sex: Female

DRUGS (3)
  1. AVONEX [Suspect]
     Indication: MULTIPLE SCLEROSIS
     Dosage: 30 UG; IM
     Route: 030
     Dates: start: 20010801, end: 20040701
  2. MULTI-VITAMINS [Concomitant]
  3. AMANTADINE [Concomitant]

REACTIONS (3)
  - PERIPHLEBITIS [None]
  - SARCOIDOSIS [None]
  - VISUAL ACUITY REDUCED [None]
